FAERS Safety Report 15276226 (Version 1)
Quarter: 2018Q3

REPORT INFORMATION
  Report Type: Spontaneous
  Country: KR (occurrence: KR)
  Receive Date: 20180814
  Receipt Date: 20180814
  Transmission Date: 20181010
  Serious: Yes (Hospitalization)
  Sender: FDA-Public Use
  Company Number: KR-JNJFOC-20180807092

PATIENT
  Sex: Female

DRUGS (3)
  1. ULTRACET [Suspect]
     Active Substance: ACETAMINOPHEN\TRAMADOL HYDROCHLORIDE
     Indication: ARTHRALGIA
     Route: 048
     Dates: start: 201805
  2. ULTRACET [Suspect]
     Active Substance: ACETAMINOPHEN\TRAMADOL HYDROCHLORIDE
     Indication: ARTHRALGIA
     Route: 048
  3. ULTRACET [Suspect]
     Active Substance: ACETAMINOPHEN\TRAMADOL HYDROCHLORIDE
     Indication: ARTHRALGIA
     Route: 048
     Dates: start: 201807

REACTIONS (4)
  - Lumbar vertebral fracture [Unknown]
  - Lower limb fracture [Unknown]
  - Peripheral swelling [Unknown]
  - Blister [Unknown]

NARRATIVE: CASE EVENT DATE: 201802
